FAERS Safety Report 4562165-0 (Version None)
Quarter: 2005Q1

REPORT INFORMATION
  Report Type: 
  Country: None (occurrence: None)
  Receive Date: 20050121
  Receipt Date: 20050113
  Transmission Date: 20050727
  Serious: Yes (Other)
  Sender: FDA-Public Use
  Company Number: USA-2005-0018325

PATIENT
  Age: 27 Year
  Sex: Male

DRUGS (6)
  1. OXYCONTIN [Suspect]
     Indication: PAIN
  2. EFFEXOR [Concomitant]
  3. TOPAMAX [Concomitant]
  4. ELAVIL [Concomitant]
  5. CLONOPIN (CLONAZEPAM) [Concomitant]
  6. VICODIN [Concomitant]

REACTIONS (4)
  - ASTHENIA [None]
  - BLOOD TESTOSTERONE DECREASED [None]
  - DIABETES MELLITUS INSULIN-DEPENDENT [None]
  - LOSS OF LIBIDO [None]
